FAERS Safety Report 15842987 (Version 9)
Quarter: 2022Q3

REPORT INFORMATION
  Report Type: Spontaneous
  Country: HU (occurrence: HU)
  Receive Date: 20190118
  Receipt Date: 20220624
  Transmission Date: 20221027
  Serious: Yes (Other)
  Sender: FDA-Public Use
  Company Number: PHHY2019HU006724

PATIENT
  Age: 43 Year
  Sex: Male

DRUGS (14)
  1. OCTREOTIDE [Suspect]
     Active Substance: OCTREOTIDE
     Indication: Acromegaly
     Dosage: 10 MG, QMO
     Route: 065
     Dates: start: 2005
  2. OCTREOTIDE [Suspect]
     Active Substance: OCTREOTIDE
     Dosage: 20 MG, QMO
     Route: 065
  3. OCTREOTIDE [Suspect]
     Active Substance: OCTREOTIDE
     Dosage: 30 MG, QMO
     Route: 065
  4. OCTREOTIDE [Suspect]
     Active Substance: OCTREOTIDE
     Dosage: 10 MG, QMO
     Route: 065
     Dates: start: 2009
  5. OCTREOTIDE [Suspect]
     Active Substance: OCTREOTIDE
     Dosage: 10 MG, QMO
     Route: 065
     Dates: start: 2011
  6. OCTREOTIDE [Suspect]
     Active Substance: OCTREOTIDE
     Dosage: 20 MG, QMO
     Route: 065
     Dates: start: 2014
  7. OCTREOTIDE [Suspect]
     Active Substance: OCTREOTIDE
     Dosage: 30 MG, QMO
     Route: 065
     Dates: start: 2015
  8. SIGNIFOR LAR [Suspect]
     Active Substance: PASIREOTIDE PAMOATE
     Indication: Acromegaly
     Dosage: 60 MG, QMO
     Route: 030
     Dates: start: 2018
  9. SIGNIFOR LAR [Suspect]
     Active Substance: PASIREOTIDE PAMOATE
     Dosage: 40 MG, QMO
     Route: 030
     Dates: start: 2019
  10. BROMOCRIPTINE [Concomitant]
     Active Substance: BROMOCRIPTINE
     Indication: Product used for unknown indication
     Dosage: UNK
     Route: 065
  11. PEGVISOMANT [Concomitant]
     Active Substance: PEGVISOMANT
     Indication: Acromegaly
     Dosage: 15 MG, QD
     Route: 065
     Dates: start: 2016
  12. PEGVISOMANT [Concomitant]
     Active Substance: PEGVISOMANT
     Dosage: 20 MG, QD
     Route: 065
  13. PEGVISOMANT [Concomitant]
     Active Substance: PEGVISOMANT
     Dosage: 30 MG, QD
     Route: 065
     Dates: start: 2018
  14. PEGVISOMANT [Concomitant]
     Active Substance: PEGVISOMANT
     Dosage: 15 MG, TID
     Route: 065
     Dates: start: 2019

REACTIONS (5)
  - Pituitary tumour benign [Unknown]
  - Neoplasm progression [Unknown]
  - Type 2 diabetes mellitus [Unknown]
  - Therapy non-responder [Unknown]
  - Drug ineffective [Unknown]
